FAERS Safety Report 9479772 (Version 1)
Quarter: 2013Q3

REPORT INFORMATION
  Report Type: Spontaneous
  Country: CA (occurrence: CA)
  Receive Date: 20130828
  Receipt Date: 20130828
  Transmission Date: 20140515
  Serious: Yes (Other)
  Sender: FDA-Public Use
  Company Number: CA-AMGEN-CANSP2011014833

PATIENT
  Age: 73 Year
  Sex: Male
  Weight: 89.8 kg

DRUGS (8)
  1. ENBREL [Suspect]
     Indication: ANKYLOSING SPONDYLITIS
     Dosage: 50 MG, QWK
     Route: 065
     Dates: start: 20100426
  2. BABY ASPIRIN [Concomitant]
  3. HYDROCHLOROTHIAZIDE [Concomitant]
     Dosage: 12.5 MG, UNK
  4. COZAAR [Concomitant]
     Dosage: 50 MG, UNK
  5. METFORMIN [Concomitant]
     Dosage: 500 MG, UNK
  6. SIMVASTATIN [Concomitant]
     Dosage: UNK UNK, QD
  7. IRON [Concomitant]
  8. MULTIVITAMINS, COMBINATIONS [Concomitant]

REACTIONS (7)
  - Dementia Alzheimer^s type [Unknown]
  - Amnesia [Unknown]
  - Axillary mass [Not Recovered/Not Resolved]
  - Neck mass [Not Recovered/Not Resolved]
  - Somnolence [Unknown]
  - Fatigue [Unknown]
  - Irritability [Unknown]
